FAERS Safety Report 21044336 (Version 1)
Quarter: 2022Q3

REPORT INFORMATION
  Report Type: Spontaneous
  Country: US (occurrence: None)
  Receive Date: 20220705
  Receipt Date: 20220705
  Transmission Date: 20221027
  Serious: Yes (Other)
  Sender: FDA-Public Use
  Company Number: 2022A236830

PATIENT
  Sex: Female

DRUGS (1)
  1. SAPHNELO [Suspect]
     Active Substance: ANIFROLUMAB-FNIA
     Route: 042

REACTIONS (4)
  - Pruritus [Recovering/Resolving]
  - Urinary tract infection [Recovering/Resolving]
  - Hypersensitivity [Recovering/Resolving]
  - Pharyngitis [Recovering/Resolving]
